FAERS Safety Report 8477599-1 (Version None)
Quarter: 2012Q2

REPORT INFORMATION
  Report Type: 
  Country: None (occurrence: None)
  Receive Date: 20120626
  Receipt Date: 20120626
  Transmission Date: 20120825
  Serious: No
  Sender: FDA-Public Use
  Company Number: None

PATIENT
  Sex: Female
  Weight: 70.5 kg

DRUGS (4)
  1. ESCITALOPRAM [Suspect]
     Indication: DEPRESSION
     Dosage: 10 MG, DAILY, ORAL 047
     Dates: start: 20120401
  2. ESCITALOPRAM [Suspect]
     Indication: ANXIETY
     Dosage: 10 MG, DAILY, ORAL 047
     Dates: start: 20120401
  3. ESCITALOPRAM [Suspect]
     Indication: ANXIETY
     Dosage: 20 MG, DAILY, ORAL. 047
     Route: 048
     Dates: start: 20120501
  4. ESCITALOPRAM [Suspect]
     Indication: DEPRESSION
     Dosage: 20 MG, DAILY, ORAL. 047
     Route: 048
     Dates: start: 20120501

REACTIONS (4)
  - CONDITION AGGRAVATED [None]
  - PANIC ATTACK [None]
  - PRODUCT SUBSTITUTION ISSUE [None]
  - ANXIETY [None]
